FAERS Safety Report 4948070-6 (Version None)
Quarter: 2006Q1

REPORT INFORMATION
  Report Type: 
  Country: None (occurrence: None)
  Receive Date: 20060314
  Receipt Date: 20060302
  Transmission Date: 20060701
  Serious: Yes (Hospitalization)
  Sender: FDA-Public Use
  Company Number: 2006PV009155

PATIENT
  Age: 75 Year
  Sex: Female

DRUGS (22)
  1. BYETTA [Suspect]
     Indication: DIABETES MELLITUS NON-INSULIN-DEPENDENT
     Dosage: 5 MCG;SC
     Route: 058
     Dates: start: 20051201, end: 20060223
  2. FAMVIR [Suspect]
     Indication: HERPES ZOSTER
     Dosage: 500 MG;TID
     Dates: start: 20060213
  3. POTASSIUM [Concomitant]
  4. DIGOXIN [Concomitant]
  5. BUMEX [Concomitant]
  6. ZOCOR [Concomitant]
  7. SEREVENT [Concomitant]
  8. FLOVENT [Concomitant]
  9. ALBUTEROL SULATE [Concomitant]
  10. TYLENOL W/ CODEINE NO. 3 [Concomitant]
  11. COUMADIN [Concomitant]
  12. SINGULAIR [Concomitant]
  13. ZAROXOLYN [Concomitant]
  14. ZOLOFT [Concomitant]
  15. METFORMIN [Concomitant]
  16. COZAAR [Concomitant]
  17. METOLAZONE [Concomitant]
  18. ZYRTEC [Concomitant]
  19. LIDODERM [Concomitant]
  20. PRANDIN [Concomitant]
  21. VICODIN [Concomitant]
  22. JANTOVEN [Concomitant]

REACTIONS (4)
  - CONFUSIONAL STATE [None]
  - HAEMODIALYSIS [None]
  - HERPES ZOSTER [None]
  - RENAL FAILURE ACUTE [None]
